FAERS Safety Report 9350571 (Version 1)
Quarter: 2013Q2

REPORT INFORMATION
  Report Type: Spontaneous
  Country: US (occurrence: US)
  Receive Date: 20130617
  Receipt Date: 20130617
  Transmission Date: 20140414
  Serious: No
  Sender: FDA-Public Use
  Company Number: US-PFIZER INC-2013181064

PATIENT
  Age: 56 Year
  Sex: Female
  Weight: 68.03 kg

DRUGS (5)
  1. LIPITOR [Suspect]
     Indication: BLOOD CHOLESTEROL INCREASED
     Dosage: UNK
  2. LIPITOR [Suspect]
     Dosage: 20 MG, UNK
  3. LIPITOR [Suspect]
     Dosage: UNK
     Dates: end: 201204
  4. LISINOPRIL [Concomitant]
     Indication: HYPERTENSION
     Dosage: UNK
  5. AMLODIPINE [Concomitant]
     Indication: HYPERTENSION
     Dosage: UNK

REACTIONS (1)
  - Pain in extremity [Unknown]
